FAERS Safety Report 12636789 (Version 9)
Quarter: 2017Q4

REPORT INFORMATION
  Report Type: Report from Study
  Country: BR (occurrence: BR)
  Receive Date: 20160809
  Receipt Date: 20171127
  Transmission Date: 20180320
  Serious: Yes (Hospitalization)
  Sender: FDA-Public Use
  Company Number: BR-ROCHE-1633828

PATIENT
  Age: 73 Year
  Sex: Female

DRUGS (53)
  1. PACLITAXEL. [Suspect]
     Active Substance: PACLITAXEL
     Indication: HER-2 POSITIVE BREAST CANCER
     Dosage: DATE OF LAST DOSE PRIOR TO SAE: 22/JUL/2017.
     Route: 042
     Dates: start: 20140611
  2. LIPLESS [Concomitant]
     Active Substance: CIPROFIBRATE
     Route: 065
     Dates: start: 201401
  3. MIRTAZAPINE. [Concomitant]
     Active Substance: MIRTAZAPINE
     Route: 065
     Dates: start: 20140610, end: 20140731
  4. CARVEDILOL. [Concomitant]
     Active Substance: CARVEDILOL
     Route: 065
     Dates: start: 20150428
  5. SPIRONOLACTONE. [Concomitant]
     Active Substance: SPIRONOLACTONE
     Route: 065
     Dates: start: 20150530
  6. FUROSEMIDE. [Concomitant]
     Active Substance: FUROSEMIDE
     Route: 065
     Dates: start: 20150818
  7. HYDRALAZINE HYDROCHLORIDE. [Concomitant]
     Active Substance: HYDRALAZINE HYDROCHLORIDE
     Route: 065
     Dates: start: 20140930, end: 20140930
  8. TAZOCIN [Concomitant]
     Active Substance: PIPERACILLIN SODIUM\TAZOBACTAM SODIUM
     Route: 065
     Dates: start: 20171031
  9. TRASTUZUMAB. [Suspect]
     Active Substance: TRASTUZUMAB
     Dosage: DATE OF LAST DOSE PRIOR TO SAE: 18/AUG/2015. (456 MG)?MAINTAINANCE DOSE
     Route: 042
     Dates: start: 20140702, end: 20150911
  10. ONDANSETRAN [Concomitant]
     Active Substance: ONDANSETRON HYDROCHLORIDE
     Indication: NAUSEA
     Route: 065
     Dates: start: 20140610, end: 20140812
  11. MIRTAZAPINE. [Concomitant]
     Active Substance: MIRTAZAPINE
     Route: 065
     Dates: start: 20140801
  12. SERTRALINE [Concomitant]
     Active Substance: SERTRALINE HYDROCHLORIDE
     Route: 065
     Dates: start: 20140930
  13. CARVEDILOL. [Concomitant]
     Active Substance: CARVEDILOL
     Route: 065
     Dates: start: 20141021, end: 20141218
  14. OSELTAMIVIR [Concomitant]
     Active Substance: OSELTAMIVIR
     Route: 065
     Dates: start: 20150524, end: 20150529
  15. FUROSEMIDE. [Concomitant]
     Active Substance: FUROSEMIDE
     Route: 065
     Dates: start: 20150530, end: 20150608
  16. FUROSEMIDE. [Concomitant]
     Active Substance: FUROSEMIDE
     Route: 065
     Dates: start: 20150609, end: 20150817
  17. CAPTOPRIL. [Concomitant]
     Active Substance: CAPTOPRIL
     Route: 065
     Dates: start: 20170323, end: 20170323
  18. PREDNISONE. [Concomitant]
     Active Substance: PREDNISONE
     Route: 065
     Dates: start: 20150524, end: 20150527
  19. PERTUZUMAB. [Suspect]
     Active Substance: PERTUZUMAB
     Dosage: DATE OF LAST DOSE PRIOR TO SAE: 18/AUG/2015?DATE OF LAST DOSE PRIOR TO SAE: 07/JUL/2016?MAINTAINANCE
     Route: 042
     Dates: start: 20140701, end: 20150911
  20. PERTUZUMAB. [Suspect]
     Active Substance: PERTUZUMAB
     Dosage: MOST RECENT DOSE PRIOR TO ACUTE DIVERTICULITIS 23/MAR/2017?MOST RECENT DOSE PRIOR TO WORSENING OF DI
     Route: 042
  21. FENTANIL [Concomitant]
     Active Substance: FENTANYL
     Dosage: 50 MCG EACH 3 DAYS
     Route: 065
     Dates: start: 20140702, end: 20141024
  22. ERTAPENEM. [Concomitant]
     Active Substance: ERTAPENEM SODIUM
     Route: 065
     Dates: start: 20170324, end: 20170402
  23. PERTUZUMAB. [Suspect]
     Active Substance: PERTUZUMAB
     Dosage: TEMPORARILY INTERRUPTED
     Route: 042
     Dates: start: 20150915, end: 20160729
  24. FENTANIL [Concomitant]
     Active Substance: FENTANYL
     Route: 065
     Dates: start: 20140610, end: 20140701
  25. AMPHOTERICIN B/TETRACYCLINE [Concomitant]
     Route: 067
     Dates: start: 20140710, end: 20140716
  26. REMERON [Concomitant]
     Active Substance: MIRTAZAPINE
     Route: 065
     Dates: start: 20140630
  27. HYDRALAZINE HYDROCHLORIDE. [Concomitant]
     Active Substance: HYDRALAZINE HYDROCHLORIDE
     Route: 065
     Dates: start: 20140530, end: 20140530
  28. CALCIUM CARBONATE. [Concomitant]
     Active Substance: CALCIUM CARBONATE
     Route: 065
     Dates: start: 20150911
  29. NORFLOXACIN [Concomitant]
     Active Substance: NORFLOXACIN
     Route: 065
     Dates: start: 20140630, end: 20140706
  30. PERTUZUMAB. [Suspect]
     Active Substance: PERTUZUMAB
     Indication: HER-2 POSITIVE BREAST CANCER
     Dosage: LOADING DOSE
     Route: 042
     Dates: start: 20140610, end: 20140610
  31. ATORVASTATIN [Concomitant]
     Active Substance: ATORVASTATIN
     Route: 065
     Dates: start: 1982, end: 20150202
  32. ATORVASTATIN [Concomitant]
     Active Substance: ATORVASTATIN
     Route: 065
     Dates: start: 20170203
  33. MORPHINE [Concomitant]
     Active Substance: MORPHINE
     Route: 065
     Dates: start: 20140603, end: 20151015
  34. CETRIMIDE [Concomitant]
     Active Substance: CETRIMIDE
     Route: 065
     Dates: start: 20140712, end: 20140805
  35. CARVEDILOL. [Concomitant]
     Active Substance: CARVEDILOL
     Route: 065
     Dates: start: 20150203, end: 20150427
  36. OMEPRAZOLE. [Concomitant]
     Active Substance: OMEPRAZOLE
     Indication: PROPHYLAXIS
     Route: 065
     Dates: start: 20140610
  37. NITROFURANTOIN. [Concomitant]
     Active Substance: NITROFURANTOIN
     Route: 065
     Dates: start: 20140730, end: 20140730
  38. TRASTUZUMAB. [Suspect]
     Active Substance: TRASTUZUMAB
     Dosage: THERAPY INTERRUPTED?DATE OF LAST DOSE PRIOR TO SAE (506 MG): 07/JUL/2016
     Route: 042
     Dates: start: 20150915, end: 20160729
  39. LOSARTAN. [Concomitant]
     Active Substance: LOSARTAN
     Route: 065
     Dates: start: 198212, end: 20141016
  40. SUCRALFATE. [Concomitant]
     Active Substance: SUCRALFATE
     Route: 065
     Dates: start: 20140710, end: 20140812
  41. SUCRALFATE. [Concomitant]
     Active Substance: SUCRALFATE
     Route: 065
     Dates: start: 20140701
  42. NYSTATIN. [Concomitant]
     Active Substance: NYSTATIN
     Route: 065
     Dates: start: 20140618, end: 20140812
  43. CARVEDILOL. [Concomitant]
     Active Substance: CARVEDILOL
     Route: 065
     Dates: start: 20141219, end: 20150202
  44. CAPTOPRIL. [Concomitant]
     Active Substance: CAPTOPRIL
     Route: 065
     Dates: start: 20140930, end: 20140930
  45. TRASTUZUMAB. [Suspect]
     Active Substance: TRASTUZUMAB
     Indication: HER-2 POSITIVE BREAST CANCER
     Dosage: LOADING DOSE
     Route: 042
     Dates: start: 20140611, end: 20140611
  46. TRASTUZUMAB. [Suspect]
     Active Substance: TRASTUZUMAB
     Dosage: MOST RECENT DOSE PRIOR TO ACUTE DIVERTICULITIS 23/MAR/2017?MOST RECENT DOSE PRIOR TO WORSENING OF DI
     Route: 042
  47. TRASTUZUMAB. [Suspect]
     Active Substance: TRASTUZUMAB
     Dosage: MOST RECENT DOSE PRIOR TO WORSENING OF DIVERTICULITIS 21/SEP/2017
     Route: 042
  48. LOSARTAN. [Concomitant]
     Active Substance: LOSARTAN
     Route: 065
     Dates: start: 20141017
  49. DIPYRONE [Concomitant]
     Active Substance: DIPYRONE
     Dosage: 240 DROPS
     Route: 065
     Dates: start: 20140604, end: 20170921
  50. LORATADINE. [Concomitant]
     Active Substance: LORATADINE
     Route: 065
     Dates: start: 20140607, end: 20140609
  51. FENTANIL [Concomitant]
     Active Substance: FENTANYL
     Dosage: 50 MCG EACH 3 DAYS
     Route: 065
     Dates: start: 20141024
  52. CLARITHROMYCIN. [Concomitant]
     Active Substance: CLARITHROMYCIN
     Route: 065
     Dates: start: 20150523, end: 20150529
  53. HYDROCHLOROTHIAZIDE. [Concomitant]
     Active Substance: HYDROCHLOROTHIAZIDE
     Route: 065
     Dates: start: 20141111

REACTIONS (4)
  - Diverticulitis [Recovered/Resolved]
  - Renal disorder [Recovering/Resolving]
  - Infectious colitis [Recovered/Resolved]
  - Colitis [Recovered/Resolved]

NARRATIVE: CASE EVENT DATE: 20150911
